FAERS Safety Report 8330575-1 (Version None)
Quarter: 2012Q2

REPORT INFORMATION
  Report Type: 
  Country: None (occurrence: None)
  Receive Date: 20120502
  Receipt Date: 20120404
  Transmission Date: 20120825
  Serious: No
  Sender: FDA-Public Use
  Company Number: US-AMGEN-USASP2012021493

PATIENT
  Age: 45 Year
  Sex: Female

DRUGS (1)
  1. ENBREL [Suspect]
     Indication: RHEUMATOID ARTHRITIS
     Dosage: 50 MG, QWK
     Dates: start: 20120402

REACTIONS (6)
  - HEADACHE [None]
  - DIZZINESS [None]
  - INJECTION SITE HAEMATOMA [None]
  - EYE SWELLING [None]
  - SWELLING FACE [None]
  - NAUSEA [None]
